FAERS Safety Report 9172324 (Version 2)
Quarter: 2013Q2

REPORT INFORMATION
  Report Type: Report from Study
  Country: DE (occurrence: DE)
  Receive Date: 20130319
  Receipt Date: 20130506
  Transmission Date: 20140414
  Serious: Yes (Death)
  Sender: FDA-Public Use
  Company Number: DE-AMGEN-DEUCT2013019095

PATIENT
  Age: 66 Year
  Sex: Female

DRUGS (6)
  1. ETANERCEPT [Suspect]
     Indication: RHEUMATOID ARTHRITIS
     Dosage: 50 MG, QWK
     Route: 058
  2. MTX                                /00113801/ [Concomitant]
     Dosage: 15 MG, WEEKLY
     Route: 051
  3. METEX                              /00113802/ [Concomitant]
     Dosage: 15 MG, WEEKLY
     Route: 058
  4. PREDNISOLONE [Concomitant]
     Dosage: UNK
     Dates: end: 201208
  5. DICLAC                             /00372302/ [Concomitant]
     Dosage: UNK, AS NEEDED
  6. FOLIC ACID [Concomitant]
     Dosage: 5 MG, QWK
     Route: 048

REACTIONS (1)
  - Sudden cardiac death [Fatal]
